FAERS Safety Report 7643575-1 (Version None)
Quarter: 2011Q3

REPORT INFORMATION
  Report Type: 
  Country: None (occurrence: None)
  Receive Date: 20110729
  Receipt Date: 20110721
  Transmission Date: 20111222
  Serious: Yes (Hospitalization)
  Sender: FDA-Public Use
  Company Number: US-VIROPHARMA INCORPORATED-20110721CINRY2141

PATIENT
  Sex: Female

DRUGS (1)
  1. CINRYZE [Suspect]
     Indication: HEREDITARY ANGIOEDEMA

REACTIONS (9)
  - TOOTH ABSCESS [None]
  - ANGIOEDEMA [None]
  - HEADACHE [None]
  - ABDOMINAL DISCOMFORT [None]
  - RESPIRATORY ARREST [None]
  - INCORRECT DRUG ADMINISTRATION RATE [None]
  - HEREDITARY ANGIOEDEMA [None]
  - OFF LABEL USE [None]
  - INFUSION RELATED REACTION [None]
